FAERS Safety Report 8316334-4 (Version None)
Quarter: 2012Q2

REPORT INFORMATION
  Report Type: 
  Country: None (occurrence: None)
  Receive Date: 20120427
  Receipt Date: 20120420
  Transmission Date: 20120825
  Serious: No
  Sender: FDA-Public Use
  Company Number: US-PFIZER INC-2012085511

PATIENT
  Sex: Female
  Weight: 95.238 kg

DRUGS (19)
  1. CITALOPRAM [Concomitant]
     Dosage: 10 MG, UNK
     Dates: end: 20120327
  2. FOLIC ACID [Concomitant]
     Dosage: 1 MG, UNK
  3. BIOTIN [Concomitant]
     Dosage: 5 MG, UNK
  4. ONDANSETRON [Concomitant]
     Dosage: 8 MG, Q 8 HR PRIOR
  5. AROMASIN [Concomitant]
     Dosage: UNK
  6. MIRALAX [Concomitant]
     Dosage: UNK
  7. HYDROCODONE BITARTRATE + ACETAMINOPHEN [Concomitant]
     Dosage: UNK
  8. XALKORI [Suspect]
     Indication: ANAPLASTIC LYMPHOMA RECEPTOR TYROSINE KINASE ASSAY
  9. XALKORI [Suspect]
     Indication: LUNG NEOPLASM MALIGNANT
     Dosage: 250 MG, 2X/DAY
     Route: 048
     Dates: start: 20120211, end: 20120314
  10. XALKORI [Suspect]
     Indication: MALIGNANT PLEURAL EFFUSION
  11. SUPER B [Concomitant]
     Dosage: UNK
  12. VITAMIN D [Concomitant]
     Dosage: 100 U, UNK
  13. LEVOXYL [Concomitant]
     Indication: HYPOTHYROIDISM
     Dosage: 100 UG, DAILY
  14. LEVOXYL [Concomitant]
     Dosage: 100 UG, UNK
     Dates: end: 20120327
  15. PROCHLORPERAZINE [Concomitant]
     Dosage: 10 MG, Q 6 HR AS NEEDED
  16. MULTI-VITAMINS [Concomitant]
     Dosage: UNK
  17. CRANBERRY [Concomitant]
     Dosage: UNK
  18. XALKORI [Suspect]
  19. CITALOPRAM [Concomitant]
     Indication: DEPRESSION
     Dosage: 20 MG, DAILY

REACTIONS (1)
  - LIVER FUNCTION TEST ABNORMAL [None]
